FAERS Safety Report 16697548 (Version 6)
Quarter: 2022Q3

REPORT INFORMATION
  Report Type: Report from Study
  Country: US (occurrence: US)
  Receive Date: 20190813
  Receipt Date: 20220815
  Transmission Date: 20221027
  Serious: Yes (Hospitalization)
  Sender: FDA-Public Use
  Company Number: PHEH2019US033495

PATIENT
  Age: 36 Year
  Sex: Female

DRUGS (7)
  1. TREPROSTINIL [Suspect]
     Active Substance: TREPROSTINIL
     Indication: Pulmonary arterial hypertension
     Dosage: DOSE:160 NG/KG/MIN, CONT
     Route: 042
     Dates: start: 20180516
  2. TREPROSTINIL [Suspect]
     Active Substance: TREPROSTINIL
     Dosage: DOSE: 178 NG/KG/MIN, CONT
     Route: 042
     Dates: start: 201906
  3. TREPROSTINIL [Suspect]
     Active Substance: TREPROSTINIL
     Dosage: DOSE: 164 NG/KG/MIN, CONT
     Route: 042
     Dates: start: 201906
  4. TREPROSTINIL [Suspect]
     Active Substance: TREPROSTINIL
     Dosage: 164 NG/KG/MIN, CONT
     Route: 042
     Dates: start: 20210818
  5. TREPROSTINIL [Suspect]
     Active Substance: TREPROSTINIL
     Dosage: DOSE: 164 NG/KG/MIN, CONT
     Route: 042
     Dates: start: 20211012
  6. REMODULIN [Concomitant]
     Active Substance: TREPROSTINIL
     Indication: Product used for unknown indication
     Dosage: UNK
     Route: 065
  7. TADALAFIL [Concomitant]
     Active Substance: TADALAFIL
     Indication: Product used for unknown indication
     Dosage: UNK
     Route: 065

REACTIONS (9)
  - Hypervolaemia [Unknown]
  - Cardiac failure [Unknown]
  - Device dislocation [Unknown]
  - Device leakage [Unknown]
  - Fluid retention [Unknown]
  - Hyperhidrosis [Recovering/Resolving]
  - Wrong technique in device usage process [Unknown]
  - Infusion site hypersensitivity [Recovering/Resolving]
  - Infusion site inflammation [Unknown]

NARRATIVE: CASE EVENT DATE: 20190804
